FAERS Safety Report 22978297 (Version 4)
Quarter: 2024Q1

REPORT INFORMATION
  Report Type: Report from Study
  Country: US (occurrence: US)
  Receive Date: 20230925
  Receipt Date: 20240102
  Transmission Date: 20240410
  Serious: Yes (Hospitalization)
  Sender: FDA-Public Use
  Company Number: US-DECIPHERA PHARMACEUTICALS LLC-2023US000829

PATIENT
  Age: 76 Year
  Sex: Male

DRUGS (2)
  1. QINLOCK [Suspect]
     Active Substance: RIPRETINIB
     Indication: Gastrointestinal stromal tumour
     Dosage: 150 MILLIGRAM, QD
     Route: 048
     Dates: start: 20230818, end: 2023
  2. QINLOCK [Suspect]
     Active Substance: RIPRETINIB
     Dosage: 150 MILLIGRAM, BID
     Route: 048
     Dates: start: 2023

REACTIONS (13)
  - Hospitalisation [Unknown]
  - Skin hypertrophy [Unknown]
  - Rhinorrhoea [Unknown]
  - Lacrimation increased [Unknown]
  - Sinus disorder [Unknown]
  - Adverse event [Unknown]
  - Myalgia [Unknown]
  - Constipation [Unknown]
  - Dry skin [Unknown]
  - Fatigue [Unknown]
  - Drug ineffective [Unknown]
  - Product dose omission in error [Unknown]
  - Extra dose administered [Unknown]

NARRATIVE: CASE EVENT DATE: 20230101
